FAERS Safety Report 6534946-5 (Version None)
Quarter: 2010Q1

REPORT INFORMATION
  Report Type: 
  Country: None (occurrence: None)
  Receive Date: 20100111
  Receipt Date: 20100111
  Transmission Date: 20100710
  Serious: Yes (Hospitalization)
  Sender: FDA-Public Use
  Company Number: None

PATIENT
  Sex: Female
  Weight: 69.4 kg

DRUGS (3)
  1. TRETINOIN [Suspect]
     Dosage: 3000 MG
  2. CYTARABINE [Suspect]
     Dosage: 2464 MG
  3. DAUNORUBICIN HCL [Suspect]
     Dosage: 352 MG

REACTIONS (5)
  - ACTIVITIES OF DAILY LIVING IMPAIRED [None]
  - CONFUSIONAL STATE [None]
  - FALL [None]
  - IMPAIRED SELF-CARE [None]
  - MUSCULAR WEAKNESS [None]
